FAERS Safety Report 11392289 (Version 1)
Quarter: 2015Q3

REPORT INFORMATION
  Report Type: Spontaneous
  Country: GB (occurrence: None)
  Receive Date: 20150814
  Receipt Date: 20150814
  Transmission Date: 20151125
  Serious: Yes (Disabling)
  Sender: FDA-Public Use
  Company Number: 2015RR-101379

PATIENT
  Age: 87 Year
  Sex: Female

DRUGS (1)
  1. CODEINE (CODEINE) UNKNOWN [Suspect]
     Active Substance: CODEINE
     Indication: ANALGESIC THERAPY
     Dosage: ONCE OR TWICE DAILY. TAKEN AS REQUIRED., UNKNOWN

REACTIONS (1)
  - Somnolence [None]
